FAERS Safety Report 4423061-2 (Version None)
Quarter: 2004Q3

REPORT INFORMATION
  Report Type: 
  Country: None (occurrence: None)
  Receive Date: 20040806
  Receipt Date: 20040726
  Transmission Date: 20050211
  Serious: Yes (Hospitalization)
  Sender: FDA-Public Use
  Company Number: MX-JNJFOC-20040800094

PATIENT
  Age: 48 Year
  Sex: Male
  Weight: 91 kg

DRUGS (3)
  1. RISPERDAL [Suspect]
     Indication: SCHIZOPHRENIA
     Dosage: 1 MG, 1 IN 1 DAY, ORAL
     Route: 048
     Dates: start: 20040611
  2. AKINETON [Concomitant]
  3. OLANZAPINE [Concomitant]

REACTIONS (7)
  - ANAEMIA [None]
  - EXTRAPYRAMIDAL DISORDER [None]
  - GASTROINTESTINAL INJURY [None]
  - GRANULOCYTE COUNT DECREASED [None]
  - OESOPHAGEAL INJURY [None]
  - PLATELET COUNT DECREASED [None]
  - WHITE BLOOD CELL COUNT DECREASED [None]
